FAERS Safety Report 8011490-X (Version None)
Quarter: 2011Q4

REPORT INFORMATION
  Report Type: 
  Country: None (occurrence: None)
  Receive Date: 20111228
  Receipt Date: 20111222
  Transmission Date: 20120403
  Serious: No
  Sender: FDA-Public Use
  Company Number: US-PFIZER INC-2011111268

PATIENT
  Sex: Male
  Weight: 110 kg

DRUGS (13)
  1. METOPROLOL [Concomitant]
     Dosage: 25 MG, 1X/DAY
  2. CIALIS [Concomitant]
  3. SOMATULINE DEPOT [Suspect]
     Indication: ACROMEGALY
     Dosage: 120 MG, 1X/DAY Q28D
     Route: 058
     Dates: start: 20081001, end: 20100501
  4. LISINOPRIL [Concomitant]
     Dosage: 25 MG, UNK
  5. ACETYLSALICYLIC ACID [Concomitant]
     Dosage: 81 MG, 1X/DAY
  6. AMLODIPINE [Concomitant]
     Dosage: 10 MG, 1X/DAY
  7. CELEBREX [Concomitant]
     Dosage: 200 MG, 2X/WEEK
  8. PLAVIX [Concomitant]
     Dosage: 75 MG, 1X/DAY
  9. ANDROGEL [Concomitant]
     Dosage: 7.5 UNK, 1X/DAY
  10. DIOVAN [Concomitant]
     Dosage: 150 MG, 1X/DAY
  11. SOMAVERT [Suspect]
     Indication: ACROMEGALY
     Dosage: 10 MG, 1X/DAY
  12. SIMVASTATIN [Concomitant]
     Dosage: 40 MG, 1X/DAY
  13. SOMATULINE DEPOT [Suspect]
     Dosage: 90 MG, 1X/DAY Q28D
     Dates: start: 20110325

REACTIONS (5)
  - BLOOD SODIUM DECREASED [None]
  - INJECTION SITE HAEMORRHAGE [None]
  - WEIGHT DECREASED [None]
  - MUSCLE SPASMS [None]
  - DEHYDRATION [None]
